FAERS Safety Report 8630448 (Version 2)
Quarter: 2012Q4

REPORT INFORMATION
  Report Type: 
  Country: US (occurrence: US)
  Receive Date: 20120622
  Receipt Date: 20121019
  Transmission Date: 20130627
  Serious: Yes (Hospitalization, Other)
  Sender: FDA-Public Use
  Company Number: US-ROCHE-1080019

PATIENT
  Sex: Female
  Weight: 41.31 kg

DRUGS (1)
  1. ACCUTANE [Suspect]
     Indication: ACNE CYSTIC
     Route: 065
     Dates: start: 1985, end: 1990

REACTIONS (7)
  - Colitis ulcerative [Unknown]
  - Irritable bowel syndrome [Unknown]
  - Major depression [Unknown]
  - Pancreatitis chronic [Unknown]
  - Headache [Unknown]
  - Injury [Unknown]
  - Inflammatory bowel disease [Unknown]
